FAERS Safety Report 19885716 (Version 2)
Quarter: 2021Q4

REPORT INFORMATION
  Report Type: Spontaneous
  Country: JP (occurrence: JP)
  Receive Date: 20210927
  Receipt Date: 20211001
  Transmission Date: 20220303
  Serious: Yes (Death, Life-Threatening, Hospitalization, Other)
  Sender: FDA-Public Use
  Company Number: None

PATIENT
  Age: 63 Year
  Sex: Male

DRUGS (5)
  1. PREDNISOLONE [Suspect]
     Active Substance: PREDNISOLONE
     Indication: Tertiary syphilis
     Dosage: 0.8 MILLIGRAM/KILOGRAM, PER DAY (35MG)
     Route: 065
     Dates: start: 2014
  2. PREDNISOLONE [Suspect]
     Active Substance: PREDNISOLONE
     Indication: Vasculitis
     Dosage: UNK, DOSE REDUCTION
     Route: 065
  3. PREDNISOLONE [Suspect]
     Active Substance: PREDNISOLONE
     Indication: Pleural effusion
  4. AMPICILLIN [Suspect]
     Active Substance: AMPICILLIN
     Indication: Tertiary syphilis
     Dosage: 8 GRAM PER DAY
     Route: 065
     Dates: start: 2014
  5. AMPICILLIN [Suspect]
     Active Substance: AMPICILLIN
     Indication: Vasculitis

REACTIONS (11)
  - Pneumonia [Fatal]
  - Acute respiratory distress syndrome [Fatal]
  - Cytomegalovirus infection [Fatal]
  - Pseudomonas infection [Fatal]
  - Depressed level of consciousness [Fatal]
  - Blood pressure abnormal [Fatal]
  - Hypogammaglobulinaemia [Fatal]
  - Adrenal insufficiency [Fatal]
  - Orthostatic hypotension [Unknown]
  - Osteonecrosis [Unknown]
  - Drug ineffective [Unknown]

NARRATIVE: CASE EVENT DATE: 20200101
